FAERS Safety Report 6227549-3 (Version None)
Quarter: 2009Q2

REPORT INFORMATION
  Report Type: 
  Country: None (occurrence: None)
  Receive Date: 20090612
  Receipt Date: 20090427
  Transmission Date: 20091009
  Serious: Yes (Hospitalization)
  Sender: FDA-Public Use
  Company Number: IT-PFIZER INC-2009198800

PATIENT
  Age: 85 Year

DRUGS (9)
  1. TORVAST [Suspect]
     Indication: DYSLIPIDAEMIA
     Dosage: 40 MG, 1X/DAY
     Route: 048
     Dates: start: 20090122, end: 20090130
  2. TORVAST [Suspect]
     Indication: ACUTE MYOCARDIAL INFARCTION
     Dosage: 20 MG, 1X/DAY
     Route: 048
     Dates: start: 20090131, end: 20090301
  3. CORDARONE [Suspect]
     Indication: ATRIAL FIBRILLATION
     Dosage: 200 MG, 1X/DAY
     Route: 048
     Dates: start: 20090123, end: 20090319
  4. SIVASTIN [Suspect]
     Indication: DYSLIPIDAEMIA
     Dosage: 20 MG, 1X/DAY
     Route: 048
     Dates: start: 20090302, end: 20090315
  5. BIFRIL [Concomitant]
     Dosage: 30 MG, UNK
     Route: 048
     Dates: start: 20090101, end: 20090402
  6. LASIX [Concomitant]
     Dosage: 25 MG, 3X/DAY
     Route: 048
     Dates: start: 20090101, end: 20090402
  7. ZYLORIC [Concomitant]
     Dosage: 150 MG, UNK
     Route: 048
     Dates: start: 20090101, end: 20090402
  8. ANTRA [Concomitant]
     Dosage: 20 MG, 1X/DAY
     Route: 048
     Dates: start: 20090101, end: 20090402
  9. KANRENOL [Concomitant]
     Dosage: 25 MG, 1X/DAY
     Route: 048
     Dates: start: 20090301, end: 20090402

REACTIONS (3)
  - GAIT DISTURBANCE [None]
  - MUSCULAR WEAKNESS [None]
  - MYALGIA [None]
